FAERS Safety Report 6434847-7 (Version None)
Quarter: 2009Q4

REPORT INFORMATION
  Report Type: 
  Country: None (occurrence: None)
  Receive Date: 20091110
  Receipt Date: 20091102
  Transmission Date: 20100525
  Serious: Yes (Other)
  Sender: FDA-Public Use
  Company Number: ES-JNJFOC-20091100375

PATIENT
  Age: 71 Year
  Sex: Female

DRUGS (4)
  1. HALOPERIDOL PRODES [Suspect]
     Indication: HALLUCINATION
     Route: 048
     Dates: start: 20090209, end: 20090210
  2. RISPERDAL [Suspect]
     Indication: HALLUCINATION
     Route: 048
     Dates: start: 20090209
  3. MIRAPEX [Concomitant]
     Indication: PARKINSON'S DISEASE
     Route: 048
     Dates: start: 20050101
  4. STALEVO 100 [Concomitant]
     Indication: PARKINSON'S DISEASE
     Route: 048
     Dates: start: 20050101

REACTIONS (5)
  - ABDOMINAL DISCOMFORT [None]
  - DYSPHONIA [None]
  - HEADACHE [None]
  - INSOMNIA [None]
  - PAIN IN EXTREMITY [None]
